FAERS Safety Report 13332741 (Version 5)
Quarter: 2017Q2

REPORT INFORMATION
  Report Type: Spontaneous
  Country: US (occurrence: US)
  Receive Date: 20170314
  Receipt Date: 20170602
  Transmission Date: 20170830
  Serious: No
  Sender: FDA-Public Use
  Company Number: US-PFIZER INC-2017100146

PATIENT
  Age: 72 Year
  Sex: Female
  Weight: 78 kg

DRUGS (4)
  1. IBRANCE [Suspect]
     Active Substance: PALBOCICLIB
     Dosage: 100 MG, CYCLIC (DAYS 1-21 Q 28 DAYS)
     Route: 048
     Dates: start: 20170211
  2. IBRANCE [Suspect]
     Active Substance: PALBOCICLIB
     Indication: BREAST CANCER
     Dosage: 100 MG, CYCLIC (DAYS 1-21 Q 28 DAYS)
     Route: 048
     Dates: start: 20170211
  3. IBRANCE [Suspect]
     Active Substance: PALBOCICLIB
     Indication: BONE CANCER
     Dosage: 100 MG, CYCLIC(1 DAILY FOR21 DAYS, THEN 7 DAYS OFF)
     Route: 048
     Dates: start: 20170208
  4. IBRANCE [Suspect]
     Active Substance: PALBOCICLIB
     Dosage: 125 MG, UNK

REACTIONS (10)
  - Eructation [Unknown]
  - Oropharyngeal pain [Unknown]
  - White blood cell count decreased [Not Recovered/Not Resolved]
  - Weight decreased [Unknown]
  - Insomnia [Recovering/Resolving]
  - Gastrooesophageal reflux disease [Not Recovered/Not Resolved]
  - Alopecia [Unknown]
  - Dysphagia [Not Recovered/Not Resolved]
  - Haemoglobin decreased [Unknown]
  - Feeding disorder [Unknown]
